FAERS Safety Report 8851265 (Version 1)
Quarter: 2012Q4

REPORT INFORMATION
  Report Type: Report from Study
  Country: CA (occurrence: CA)
  Receive Date: 20121019
  Receipt Date: 20121019
  Transmission Date: 20130627
  Serious: Yes (Other)
  Sender: FDA-Public Use
  Company Number: CA-ABBOTT-12P-028-0973408-00

PATIENT
  Sex: Male
  Weight: 50.85 kg

DRUGS (8)
  1. KALETRA [Suspect]
     Indication: ANTIRETROVIRAL THERAPY
     Dosage: 200mg/50mg, 2 tabs
     Route: 050
     Dates: start: 20120315
  2. KALETRA [Suspect]
     Indication: HIV INFECTION
  3. ISENTRESS [Concomitant]
     Indication: HIV INFECTION
     Route: 048
  4. CELSENTRI [Concomitant]
     Indication: HIV INFECTION
     Route: 048
  5. TRUVADA [Concomitant]
     Indication: HIV INFECTION
     Dosage: 200mg/ 300 mg
     Route: 048
     Dates: start: 20120315
  6. ATIVAN [Concomitant]
     Indication: SLEEP DISORDER THERAPY
     Dosage: PRN
     Route: 048
     Dates: start: 20120225
  7. STUDY DRUG /PLACEBO [Concomitant]
     Dates: start: 20120315
  8. STUDY DRUG /PLACEBO [Concomitant]
     Dates: start: 20120315

REACTIONS (7)
  - Ulcer [Unknown]
  - Bladder disorder [Unknown]
  - Neoplasm malignant [Unknown]
  - Prostate infection [Not Recovered/Not Resolved]
  - Prostatic pain [Not Recovered/Not Resolved]
  - Pollakiuria [Not Recovered/Not Resolved]
  - Prostatitis [Unknown]
